FAERS Safety Report 5046769-7 (Version None)
Quarter: 2006Q3

REPORT INFORMATION
  Report Type: 
  Country: None (occurrence: None)
  Receive Date: 20060705
  Receipt Date: 20060705
  Transmission Date: 20061208
  Serious: Yes (Hospitalization)
  Sender: FDA-Public Use
  Company Number: None

PATIENT
  Age: 75 Year
  Sex: Female
  Weight: 88.4 kg

DRUGS (3)
  1. SENSIPAR [Suspect]
     Indication: HAEMODIALYSIS
     Dosage: 30 MG DAILY PO
     Route: 048
     Dates: start: 20060502
  2. SENSIPAR [Suspect]
     Indication: HYPERPARATHYROIDISM SECONDARY
     Dosage: 30 MG DAILY PO
     Route: 048
     Dates: start: 20060502
  3. SENSIPAR [Suspect]
     Indication: RENAL FAILURE CHRONIC
     Dosage: 30 MG DAILY PO
     Route: 048
     Dates: start: 20060502

REACTIONS (5)
  - ASTHENIA [None]
  - CHILLS [None]
  - DYSKINESIA [None]
  - FALL [None]
  - HALLUCINATION [None]
